FAERS Safety Report 15996560 (Version 1)
Quarter: 2019Q1

REPORT INFORMATION
  Report Type: Spontaneous
  Country: US (occurrence: US)
  Receive Date: 20190222
  Receipt Date: 20190222
  Transmission Date: 20190418
  Serious: Yes (Other)
  Sender: FDA-Public Use
  Company Number: US-BAUSCH-BL-2019-005511

PATIENT
  Sex: Male

DRUGS (2)
  1. SILIQ [Suspect]
     Active Substance: BRODALUMAB
     Indication: PRODUCT USED FOR UNKNOWN INDICATION
     Dosage: OFF OF MEDICATION FOR 8 WEEKS.
     Route: 065
     Dates: start: 20180404, end: 2018
  2. SILIQ [Suspect]
     Active Substance: BRODALUMAB
     Dosage: MAINTENANCE DOSING
     Route: 065
     Dates: start: 2018

REACTIONS (2)
  - Hernia repair [Unknown]
  - Drug ineffective [Unknown]

NARRATIVE: CASE EVENT DATE: 2018
